FAERS Safety Report 23692461 (Version 3)
Quarter: 2024Q2

REPORT INFORMATION
  Report Type: Spontaneous
  Country: US (occurrence: US)
  Receive Date: 20240401
  Receipt Date: 20240404
  Transmission Date: 20240716
  Serious: Yes (Death, Other)
  Sender: FDA-Public Use
  Company Number: US-BIOVITRUM-2024-US-003970

PATIENT
  Age: 79 Year
  Sex: Male

DRUGS (3)
  1. VONJO [Suspect]
     Active Substance: PACRITINIB
     Indication: Myelofibrosis
     Dosage: 200 MG, TWICE A DAY
     Route: 048
     Dates: start: 20240214, end: 20240329
  2. EXJADE/JADENU [Concomitant]
     Indication: Product used for unknown indication
  3. EXJADE/JADENU [Concomitant]
     Indication: Product used for unknown indication

REACTIONS (1)
  - Death [Fatal]
